FAERS Safety Report 4530709-0 (Version None)
Quarter: 2004Q4

REPORT INFORMATION
  Report Type: 
  Country: None (occurrence: None)
  Receive Date: 20041216
  Receipt Date: 20041130
  Transmission Date: 20050328
  Serious: Yes (Hospitalization)
  Sender: FDA-Public Use
  Company Number: DSA_25466_2004

PATIENT
  Age: 65 Year
  Sex: Male

DRUGS (3)
  1. ENALAPRIL MALEATE [Suspect]
     Dosage: PO
     Route: 048
     Dates: start: 20040101, end: 20041004
  2. GLEEVEC [Suspect]
     Indication: CHRONIC MYELOID LEUKAEMIA
     Dosage: PO
     Route: 048
     Dates: end: 20041004
  3. GLEEVEC [Suspect]
     Indication: CHRONIC MYELOID LEUKAEMIA
     Dosage: PO
     Route: 048
     Dates: start: 20041013

REACTIONS (6)
  - HAEMOGLOBIN DECREASED [None]
  - INTERNATIONAL NORMALISED RATIO INCREASED [None]
  - KIDNEY ENLARGEMENT [None]
  - PANCREATIC CYST [None]
  - PANCREATITIS [None]
  - PLATELET COUNT DECREASED [None]
